FAERS Safety Report 13661641 (Version 1)
Quarter: 2017Q2

REPORT INFORMATION
  Report Type: Spontaneous
  Country: US (occurrence: US)
  Receive Date: 20170616
  Receipt Date: 20170616
  Transmission Date: 20170830
  Serious: No
  Sender: FDA-Public Use
  Company Number: US-UPSHER-SMITH LABORATORIES, INC.-17000243

PATIENT
  Age: 77 Year
  Sex: Male

DRUGS (13)
  1. PACERONE [Suspect]
     Active Substance: AMIODARONE HYDROCHLORIDE
     Indication: VENTRICULAR ARRHYTHMIA
     Dosage: 200 MG, BID
     Route: 048
     Dates: start: 20170306
  2. CARVEDILOL. [Concomitant]
     Active Substance: CARVEDILOL
     Indication: VENTRICULAR ARRHYTHMIA
     Dosage: 12.5 MG, BID
     Route: 048
  3. ASPIRIN. [Concomitant]
     Active Substance: ASPIRIN
     Indication: PROPHYLAXIS
     Dosage: 81 MG, QD
     Route: 048
  4. DIGOXIN. [Concomitant]
     Active Substance: DIGOXIN
     Indication: VENTRICULAR ARRHYTHMIA
     Dosage: .125 MG, QD
     Route: 048
  5. CIALIS [Concomitant]
     Active Substance: TADALAFIL
     Dosage: UNK, PRN
     Route: 048
  6. TESTOSTERONE CYPIONATE. [Concomitant]
     Active Substance: TESTOSTERONE CYPIONATE
     Dosage: UNK, Q 3 WEEKS
     Route: 030
  7. CRESTOR [Concomitant]
     Active Substance: ROSUVASTATIN CALCIUM
     Indication: BLOOD CHOLESTEROL INCREASED
     Dosage: 20 MG, QD
     Route: 048
  8. ENTRESTO [Concomitant]
     Active Substance: SACUBITRIL\VALSARTAN
     Indication: CARDIAC FAILURE
     Dosage: 97/103 MG, QD
     Route: 048
  9. HYDROCODONE BITARTRATE AND ACETAMINOPHEN [Concomitant]
     Active Substance: ACETAMINOPHEN\HYDROCODONE BITARTRATE
     Indication: BACK PAIN
     Dosage: 7.5/500 MG, PRN
     Route: 048
  10. VITAMIN D [Concomitant]
     Active Substance: CHOLECALCIFEROL
     Dosage: 3000 IU, QD
     Route: 048
  11. TUMS [Concomitant]
     Active Substance: CALCIUM CARBONATE
     Dosage: UNK, QD
  12. CENTRUM [Concomitant]
     Active Substance: VITAMINS
     Dosage: UNK, QD
     Route: 048
  13. LEVOTHYROXINE SODIUM. [Concomitant]
     Active Substance: LEVOTHYROXINE SODIUM
     Indication: THYROIDECTOMY
     Dosage: 150 MCG, QD
     Route: 048

REACTIONS (6)
  - Amnesia [Not Recovered/Not Resolved]
  - Dizziness [Not Recovered/Not Resolved]
  - Fatigue [Not Recovered/Not Resolved]
  - Lethargy [Not Recovered/Not Resolved]
  - Feeling abnormal [Not Recovered/Not Resolved]
  - Decreased appetite [Not Recovered/Not Resolved]

NARRATIVE: CASE EVENT DATE: 20170307
